FAERS Safety Report 19840297 (Version 8)
Quarter: 2022Q4

REPORT INFORMATION
  Report Type: Report from Study
  Country: US (occurrence: US)
  Receive Date: 20210915
  Receipt Date: 20221012
  Transmission Date: 20230113
  Serious: Yes (Death, Other)
  Sender: FDA-Public Use
  Company Number: US-GLAXOSMITHKLINE-US2021AMR184831

PATIENT

DRUGS (1)
  1. BELANTAMAB MAFODOTIN [Suspect]
     Active Substance: BELANTAMAB MAFODOTIN
     Indication: Plasma cell myeloma
     Dosage: UNK
     Dates: start: 20210730, end: 20220423

REACTIONS (5)
  - Death [Fatal]
  - Ocular toxicity [Recovered/Resolved]
  - Night blindness [Recovered/Resolved]
  - Visual acuity reduced [Recovered/Resolved]
  - Keratopathy [Recovered/Resolved]

NARRATIVE: CASE EVENT DATE: 20210831
